FAERS Safety Report 4611631-8 (Version None)
Quarter: 2005Q1

REPORT INFORMATION
  Report Type: 
  Country: None (occurrence: None)
  Receive Date: 20050317
  Receipt Date: 20050310
  Transmission Date: 20050727
  Serious: Yes (Hospitalization)
  Sender: FDA-Public Use
  Company Number: FR-ROCHE-398250

PATIENT
  Age: 11 Year
  Sex: Female
  Weight: 62 kg

DRUGS (2)
  1. ROCEPHIN [Suspect]
     Indication: CYSTITIS
     Dosage: FORMULATION REPORTED AS INJECTABLE SOLUTION
     Route: 042
     Dates: start: 20041017, end: 20041018
  2. NEBCIN [Concomitant]
     Indication: CYSTITIS
     Dosage: FORMULATION REPORTED AS INJECTABLE SOLUTION
     Route: 042
     Dates: start: 20041017

REACTIONS (5)
  - ERYTHEMA [None]
  - EXANTHEM [None]
  - HYPERSENSITIVITY [None]
  - MALAISE [None]
  - PRURITUS [None]
